FAERS Safety Report 9194809 (Version 1)
Quarter: 2013Q1

REPORT INFORMATION
  Report Type: Spontaneous
  Country: US (occurrence: US)
  Receive Date: 20130328
  Receipt Date: 20130328
  Transmission Date: 20140127
  Serious: No
  Sender: FDA-Public Use
  Company Number: US-ALLERGAN-1211251US

PATIENT
  Age: 53 Year
  Sex: Female

DRUGS (2)
  1. LATISSE 0.03% [Suspect]
     Indication: GROWTH OF EYELASHES
     Dosage: 4 GTT, QHS
     Route: 061
     Dates: start: 201207, end: 201208
  2. KEPPRA [Concomitant]
     Indication: CONVULSION
     Dosage: 3000 MG, BID
     Dates: start: 201203

REACTIONS (4)
  - Hair texture abnormal [Recovered/Resolved]
  - Incorrect dose administered [Unknown]
  - Skin discolouration [Recovered/Resolved]
  - Madarosis [Recovered/Resolved]
